FAERS Safety Report 4329655-7 (Version None)
Quarter: 2004Q2

REPORT INFORMATION
  Report Type: 
  Country: None (occurrence: None)
  Receive Date: 20040401
  Receipt Date: 20040315
  Transmission Date: 20050107
  Serious: Yes (Other)
  Sender: FDA-Public Use
  Company Number: PHBS2004CA03647

PATIENT
  Age: 42 Year
  Sex: Male

DRUGS (3)
  1. ZELNORM [Suspect]
     Indication: CONSTIPATION
     Dosage: 6 MG, QD
     Route: 048
     Dates: start: 20040312, end: 20040312
  2. NICOTINE [Concomitant]
     Dosage: 21 MG/DAY
     Route: 061
  3. PANTOPRAZOLE SODIUM [Concomitant]
     Dosage: 40 MG, QD

REACTIONS (4)
  - ABDOMINAL PAIN [None]
  - DIARRHOEA [None]
  - FOOD POISONING [None]
  - FREQUENT BOWEL MOVEMENTS [None]
